FAERS Safety Report 7454841-7 (Version None)
Quarter: 2011Q2

REPORT INFORMATION
  Report Type: 
  Country: None (occurrence: None)
  Receive Date: 20110503
  Receipt Date: 20110420
  Transmission Date: 20111010
  Serious: Yes (Disabling)
  Sender: FDA-Public Use
  Company Number: GB-SANOFI-AVENTIS-2011SA024716

PATIENT
  Age: 73 Year
  Sex: Female

DRUGS (2)
  1. AMLODIPINE (SALT NOT SPECIFIED) [Interacting]
     Indication: HYPERTENSION
     Route: 048
     Dates: start: 20110201, end: 20110301
  2. LEFLUNOMIDE [Suspect]
     Indication: RHEUMATOID ARTHRITIS
     Route: 048

REACTIONS (3)
  - PAIN [None]
  - DRUG INTERACTION [None]
  - RHEUMATOID ARTHRITIS [None]
